FAERS Safety Report 5778015-0 (Version None)
Quarter: 2008Q2

REPORT INFORMATION
  Report Type: 
  Country: None (occurrence: None)
  Receive Date: 20080619
  Receipt Date: 20080617
  Transmission Date: 20081010
  Serious: Yes (Hospitalization, Other)
  Sender: FDA-Public Use
  Company Number: GB-BRISTOL-MYERS SQUIBB COMPANY-14232003

PATIENT
  Age: 67 Year
  Sex: Male

DRUGS (2)
  1. IRBESARTAN [Suspect]
     Route: 048
     Dates: start: 19930101
  2. CHEMOTHERAPY [Concomitant]

REACTIONS (2)
  - OESOPHAGEAL CARCINOMA [None]
  - OESOPHAGEAL OBSTRUCTION [None]
